FAERS Safety Report 20096620 (Version 3)
Quarter: 2021Q4

REPORT INFORMATION
  Report Type: Spontaneous
  Country: US (occurrence: US)
  Receive Date: 20211122
  Receipt Date: 20211202
  Transmission Date: 20220303
  Serious: Yes (Other)
  Sender: FDA-Public Use
  Company Number: US-AMGEN-USASP2021180374

PATIENT
  Age: 67 Year
  Sex: Male
  Weight: 89.342 kg

DRUGS (43)
  1. REPATHA [Suspect]
     Active Substance: EVOLOCUMAB
     Indication: Blood cholesterol increased
     Dosage: 140 MILLIGRAM, Q2WK
     Route: 058
     Dates: start: 20210312
  2. REPATHA [Suspect]
     Active Substance: EVOLOCUMAB
     Indication: Type IIa hyperlipidaemia
  3. ALPRAZOLAM [Concomitant]
     Active Substance: ALPRAZOLAM
     Dosage: 1 MILLIGRAM, QID
     Route: 048
  4. ALPRAZOLAM [Concomitant]
     Active Substance: ALPRAZOLAM
     Dosage: 1 MILLIGRAM, QID
     Route: 048
     Dates: start: 20211007
  5. AMILORIDE [Concomitant]
     Active Substance: AMILORIDE
     Indication: Hypertension
     Dosage: 5 MILLIGRAM, BID
     Route: 048
  6. AMILORIDE [Concomitant]
     Active Substance: AMILORIDE
     Dosage: 5 MILLIGRAM, BID
     Route: 048
     Dates: start: 20210413
  7. VITAMIN C [Concomitant]
     Active Substance: ASCORBIC ACID
     Dosage: 1 GRAM, BID
     Route: 048
  8. ASPIRIN [Concomitant]
     Active Substance: ASPIRIN
     Dosage: 325 MILLIGRAM, BID
     Route: 048
  9. ATORVASTATIN [Concomitant]
     Active Substance: ATORVASTATIN
     Dosage: 10 MILLIGRAM, QD
     Route: 048
  10. ATORVASTATIN [Concomitant]
     Active Substance: ATORVASTATIN
     Dosage: 10 MILLIGRAM, QD
     Route: 048
     Dates: start: 20210921
  11. DDD CHOLECALCIFEROL (VITAMIN D3) [Concomitant]
     Dosage: 125 MICROGRAM, QD
     Route: 048
  12. CLOPIDOGREL [Concomitant]
     Active Substance: CLOPIDOGREL BISULFATE
     Dosage: 75 MILLIGRAM, QD
     Route: 048
  13. CLOPIDOGREL [Concomitant]
     Active Substance: CLOPIDOGREL BISULFATE
     Dosage: 75 MILLIGRAM, QD
     Route: 048
     Dates: start: 20210921
  14. COENZYME Q10 [Concomitant]
     Active Substance: DIETARY SUPPLEMENT\UBIDECARENONE
     Dosage: 400 MILLIGRAM, QD
     Route: 048
  15. DOCUSATE SODIUM [Concomitant]
     Active Substance: DOCUSATE SODIUM
     Dosage: 100 MILLIGRAM, QD
     Route: 048
  16. DOCUSATE SODIUM [Concomitant]
     Active Substance: DOCUSATE SODIUM
     Dosage: 200 MILLIGRAM, QD
     Route: 048
  17. ENTRESTO [Concomitant]
     Active Substance: SACUBITRIL\VALSARTAN
     Dosage: 49-51 MG , BID
     Route: 048
  18. ENTRESTO [Concomitant]
     Active Substance: SACUBITRIL\VALSARTAN
     Dosage: 49-51 MG , BID
     Route: 048
     Dates: start: 20210921
  19. INSPRA [Concomitant]
     Active Substance: EPLERENONE
     Dosage: 25 MILLIGRAM, QD
     Route: 048
  20. EZETIMIBE [Concomitant]
     Active Substance: EZETIMIBE
     Dosage: 10 MILLIGRAM, QD
     Route: 048
     Dates: start: 20210921
  21. FAMCICLOVIR [Concomitant]
     Active Substance: FAMCICLOVIR
     Dosage: 500 MILLIGRAM, TID
     Route: 048
  22. FAMCICLOVIR [Concomitant]
     Active Substance: FAMCICLOVIR
     Dosage: 500 MILLIGRAM, QD
     Route: 048
     Dates: start: 20210301
  23. GRAPE SEED EXTRACT [VITIS VINIFERA SEED] [Concomitant]
     Dosage: 500 MILLIGRAM
     Route: 048
  24. CHLORPHENIRAMINE\HYDROCODONE [Concomitant]
     Active Substance: CHLORPHENIRAMINE\HYDROCODONE
     Dosage: 10-8 MG/5 ML
     Route: 048
  25. CHLORPHENIRAMINE\HYDROCODONE [Concomitant]
     Active Substance: CHLORPHENIRAMINE\HYDROCODONE
     Dosage: 10-8 MG/5 ML
     Route: 048
     Dates: start: 20211109
  26. L-METHYL-B6-B12 [Concomitant]
     Active Substance: LEVOMEFOLATE CALCIUM\METHYLCOBALAMIN\PYRIDOXAL 5-PHOSPHATE
     Dosage: 3-35-2 MILLIGRAM, QD
     Route: 048
  27. L-METHYL-B6-B12 [Concomitant]
     Active Substance: LEVOMEFOLATE CALCIUM\METHYLCOBALAMIN\PYRIDOXAL 5-PHOSPHATE
     Dosage: 3-35-2 MILLIGRAM, QD
     Route: 048
     Dates: start: 20210806
  28. LEVOTHYROXINE [Concomitant]
     Active Substance: LEVOTHYROXINE
     Dosage: 50 MICROGRAM, QD
     Route: 048
  29. LEVOTHYROXINE [Concomitant]
     Active Substance: LEVOTHYROXINE
     Dosage: 50 MICROGRAM, QD
     Route: 048
     Dates: start: 20211007
  30. LYSINE [Concomitant]
     Active Substance: LYSINE
     Dosage: 500 MILLIGRAM, BID
     Route: 048
  31. LYSINE [Concomitant]
     Active Substance: LYSINE
     Dosage: 500 MILLIGRAM, BID
     Route: 048
  32. NITROGLYCERIN [Concomitant]
     Active Substance: NITROGLYCERIN
     Indication: Chest pain
     Dosage: 400 MICROGRAM/SPRAY
  33. NITROGLYCERIN [Concomitant]
     Active Substance: NITROGLYCERIN
     Dosage: 400 MICROGRAM/SPRAY
     Dates: start: 20210413
  34. POTASSIUM CHLORIDE [Concomitant]
     Active Substance: POTASSIUM CHLORIDE
     Dosage: 20 MEQ, TID
     Route: 048
  35. POTASSIUM CHLORIDE [Concomitant]
     Active Substance: POTASSIUM CHLORIDE
     Dosage: 20 MEQ, TID
     Route: 048
     Dates: start: 20210413
  36. TESTOSTERONE [Concomitant]
     Active Substance: TESTOSTERONE
     Dosage: 20.25 MILLIGRAM/1.25 GRAM, QD
  37. TESTOSTERONE [Concomitant]
     Active Substance: TESTOSTERONE
     Dosage: 20.25 MILLIGRAM/1.25 GRAM, QD
     Dates: start: 20211007
  38. TORSEMIDE [Concomitant]
     Active Substance: TORSEMIDE
     Dosage: 10 MILLIGRAM, QD
  39. TORSEMIDE [Concomitant]
     Active Substance: TORSEMIDE
     Dosage: 10 MILLIGRAM, QD
     Dates: start: 20211101
  40. VASCEPA [Concomitant]
     Active Substance: ICOSAPENT ETHYL
     Dosage: 1 MILLIGRAM, BID
     Route: 048
     Dates: start: 20211018
  41. VIAGRA [Concomitant]
     Active Substance: SILDENAFIL CITRATE
     Dosage: 100 MILLIGRAM, AS NECESSARY
     Route: 048
     Dates: start: 20210512
  42. LANSOPRAZOLE [Concomitant]
     Active Substance: LANSOPRAZOLE
     Dosage: 30 MILLIGRAM, QD
     Route: 048
     Dates: start: 20210615
  43. NALOXONE [Concomitant]
     Active Substance: NALOXONE
     Dosage: 4 MILLIGRAM
     Dates: start: 20211109

REACTIONS (26)
  - Angioedema [Unknown]
  - Cardiac failure congestive [Unknown]
  - Coronary arterial stent insertion [Unknown]
  - Pain [Unknown]
  - Vision blurred [Unknown]
  - Asthenia [Unknown]
  - Musculoskeletal stiffness [Unknown]
  - Nervousness [Unknown]
  - Skin discolouration [Unknown]
  - Nasal congestion [Unknown]
  - Fatigue [Unknown]
  - Dizziness [Unknown]
  - Chills [Unknown]
  - Cough [Unknown]
  - Headache [Unknown]
  - Myalgia [Unknown]
  - Arthralgia [Unknown]
  - Back pain [Unknown]
  - Nausea [Unknown]
  - Impaired healing [Unknown]
  - Dry skin [Unknown]
  - Illness [Unknown]
  - Myalgia [Unknown]
  - Foreskin oedema [Unknown]
  - Heart rate increased [Unknown]
  - Chest pain [Unknown]

NARRATIVE: CASE EVENT DATE: 20210101
